APPROVED DRUG PRODUCT: TRIMETHOPRIM
Active Ingredient: TRIMETHOPRIM
Strength: 100MG
Dosage Form/Route: TABLET;ORAL
Application: A216393 | Product #001 | TE Code: AB
Applicant: NOVITIUM PHARMA LLC
Approved: Oct 28, 2022 | RLD: No | RS: No | Type: RX